FAERS Safety Report 9810130 (Version 2)
Quarter: 2015Q3

REPORT INFORMATION
  Report Type: Spontaneous
  Country: US (occurrence: US)
  Receive Date: 20140110
  Receipt Date: 20150718
  Transmission Date: 20151125
  Serious: Yes (Hospitalization, Other)
  Sender: FDA-Public Use
  Company Number: US-SANOFI-AVENTIS-2013SA079563

PATIENT
  Age: 44 Year

DRUGS (16)
  1. PLAVIX [Suspect]
     Active Substance: CLOPIDOGREL BISULFATE
     Indication: STENT PLACEMENT
     Route: 048
     Dates: start: 20000310, end: 20090608
  2. ASPIRIN. [Concomitant]
     Active Substance: ASPIRIN
     Dates: start: 19980123
  3. ASPIRIN. [Concomitant]
     Active Substance: ASPIRIN
     Dates: start: 19980812
  4. ASPIRIN. [Concomitant]
     Active Substance: ASPIRIN
     Dates: start: 19981124
  5. ASPIRIN. [Concomitant]
     Active Substance: ASPIRIN
     Dates: start: 19980501
  6. ATENOLOL. [Concomitant]
     Active Substance: ATENOLOL
  7. ASPIRIN. [Concomitant]
     Active Substance: ASPIRIN
     Dates: start: 19960119
  8. ASPIRIN. [Concomitant]
     Active Substance: ASPIRIN
     Dates: start: 20060318
  9. ASPIRIN. [Concomitant]
     Active Substance: ASPIRIN
     Dates: start: 20101002, end: 20101018
  10. COUMADIN [Concomitant]
     Active Substance: WARFARIN SODIUM
     Dates: start: 19960913
  11. COUMADIN [Concomitant]
     Active Substance: WARFARIN SODIUM
     Dates: start: 19970305
  12. ASPIRIN. [Concomitant]
     Active Substance: ASPIRIN
     Dates: start: 19951013
  13. ASPIRIN. [Concomitant]
     Active Substance: ASPIRIN
     Dates: start: 19960513
  14. ASPIRIN. [Concomitant]
     Active Substance: ASPIRIN
     Dates: start: 20020606
  15. ASPIRIN. [Concomitant]
     Active Substance: ASPIRIN
     Dates: start: 19970826
  16. PLAVIX [Suspect]
     Active Substance: CLOPIDOGREL BISULFATE
     Indication: MYOCARDIAL INFARCTION
     Route: 048
     Dates: start: 20000310, end: 20090608

REACTIONS (7)
  - Irritable bowel syndrome [Unknown]
  - Gastric haemorrhage [Unknown]
  - Erythema [Unknown]
  - Gastrooesophageal reflux disease [Unknown]
  - Acid peptic disease [Unknown]
  - Haemorrhage [Unknown]
  - Erosive oesophagitis [Unknown]

NARRATIVE: CASE EVENT DATE: 20070529
